FAERS Safety Report 12909695 (Version 1)
Quarter: 2016Q4

REPORT INFORMATION
  Report Type: Report from Study
  Country: US (occurrence: US)
  Receive Date: 20161104
  Receipt Date: 20161104
  Transmission Date: 20170207
  Serious: No
  Sender: FDA-Public Use
  Company Number: US-AMGEN-USASL2016152123

PATIENT
  Age: 67 Year
  Sex: Female

DRUGS (2)
  1. ENBREL [Suspect]
     Active Substance: ETANERCEPT
     Indication: RHEUMATOID ARTHRITIS
     Dosage: 50 MG, QWK
     Route: 065
  2. HYALGAN [Concomitant]
     Active Substance: HYALURONATE SODIUM
     Dosage: UNK

REACTIONS (5)
  - Drug effect delayed [Unknown]
  - Fatigue [Unknown]
  - Skin haemorrhage [Unknown]
  - Dry skin [Unknown]
  - Scab [Unknown]
